FAERS Safety Report 9350320 (Version 3)
Quarter: 2013Q3

REPORT INFORMATION
  Report Type: Spontaneous
  Country: US (occurrence: US)
  Receive Date: 20130617
  Receipt Date: 20130813
  Transmission Date: 20140515
  Serious: Yes (Other)
  Sender: FDA-Public Use
  Company Number: US-JNJFOC-20130609781

PATIENT
  Sex: Female
  Weight: 77.11 kg

DRUGS (8)
  1. ROGAINE FOR WOMEN REGULAR STRENGTH [Suspect]
     Route: 061
  2. ROGAINE FOR WOMEN REGULAR STRENGTH [Suspect]
     Indication: HAIR GROWTH ABNORMAL
     Dosage: PRODUCT USED FOR ABOUT TEN YEAR
     Route: 061
     Dates: end: 20130610
  3. VYTORIN [Concomitant]
     Indication: BLOOD CHOLESTEROL
     Route: 065
     Dates: start: 2010
  4. FISH OIL [Concomitant]
     Indication: ROUTINE HEALTH MAINTENANCE
     Route: 065
  5. CO-ENZYME Q10 [Concomitant]
     Indication: ROUTINE HEALTH MAINTENANCE
     Route: 065
  6. BIOTIN [Concomitant]
     Indication: NUTRITIONAL SUPPLEMENTATION
     Route: 065
  7. CALCIUM W/ D [Concomitant]
     Indication: ROUTINE HEALTH MAINTENANCE
     Route: 065
  8. BABY ASPIRIN [Concomitant]
     Indication: CARDIAC DISORDER
     Dosage: EVER OTHER DAY
     Route: 065

REACTIONS (1)
  - Atrial fibrillation [Recovering/Resolving]
